FAERS Safety Report 11835804 (Version 1)
Quarter: 2015Q4

REPORT INFORMATION
  Report Type: Report from Study
  Country: CA (occurrence: CA)
  Receive Date: 20151215
  Receipt Date: 20151215
  Transmission Date: 20160305
  Serious: Yes (Other)
  Sender: FDA-Public Use
  Company Number: PHHY2015CA118930

PATIENT
  Age: 64 Year
  Sex: Female

DRUGS (7)
  1. GLEEVEC [Suspect]
     Active Substance: IMATINIB MESYLATE
     Dosage: 200 MG, QD
     Route: 048
     Dates: end: 20151111
  2. MAGNESIUM [Concomitant]
     Active Substance: MAGNESIUM
     Indication: PRODUCT USED FOR UNKNOWN INDICATION
     Route: 065
  3. GLEEVEC [Suspect]
     Active Substance: IMATINIB MESYLATE
     Indication: GASTROINTESTINAL STROMAL TUMOUR
     Dosage: 400 MG, QD
     Route: 048
     Dates: start: 20150901, end: 20150916
  4. SYNTHROID [Concomitant]
     Active Substance: LEVOTHYROXINE SODIUM
     Indication: PRODUCT USED FOR UNKNOWN INDICATION
     Route: 065
  5. CALCIUM [Concomitant]
     Active Substance: CALCIUM
     Indication: PRODUCT USED FOR UNKNOWN INDICATION
     Route: 065
  6. PROPRANOLOL [Concomitant]
     Active Substance: PROPRANOLOL\PROPRANOLOL HYDROCHLORIDE
     Indication: PRODUCT USED FOR UNKNOWN INDICATION
     Route: 065
  7. VITAMIN D [Concomitant]
     Active Substance: CHOLECALCIFEROL
     Indication: PRODUCT USED FOR UNKNOWN INDICATION
     Route: 065

REACTIONS (17)
  - Eye swelling [Recovered/Resolved]
  - Skin tightness [Recovered/Resolved]
  - Contusion [Recovered/Resolved]
  - Basedow^s disease [Recovering/Resolving]
  - Gait disturbance [Recovered/Resolved]
  - Alopecia [Recovered/Resolved]
  - Metamorphopsia [Recovering/Resolving]
  - Dizziness [Unknown]
  - Vertigo [Recovering/Resolving]
  - Burning sensation [Recovered/Resolved]
  - Swelling face [Recovered/Resolved]
  - Reading disorder [Recovered/Resolved]
  - Erythema [Recovered/Resolved]
  - Muscle spasms [Recovering/Resolving]
  - Vision blurred [Recovering/Resolving]
  - Rash [Recovered/Resolved]
  - Nausea [Recovered/Resolved]

NARRATIVE: CASE EVENT DATE: 201509
